FAERS Safety Report 6383198-8 (Version None)
Quarter: 2009Q3

REPORT INFORMATION
  Report Type: 
  Country: None (occurrence: None)
  Receive Date: 20090929
  Receipt Date: 20090914
  Transmission Date: 20100115
  Serious: No
  Sender: FDA-Public Use
  Company Number: C-09-0211-W

PATIENT
  Age: 80 Year
  Sex: Female
  Weight: 50.8029 kg

DRUGS (1)
  1. FAMOTIDINE [Suspect]
     Indication: GASTROOESOPHAGEAL REFLUX DISEASE
     Dosage: 20MG B.I.D.
     Dates: start: 20010101

REACTIONS (1)
  - ALOPECIA [None]
